FAERS Safety Report 16375111 (Version 1)
Quarter: 2019Q2

REPORT INFORMATION
  Report Type: Spontaneous
  Country: US (occurrence: US)
  Receive Date: 20190531
  Receipt Date: 20190531
  Transmission Date: 20190711
  Serious: Yes (Hospitalization, Other)
  Sender: FDA-Public Use
  Company Number: US-LUPIN PHARMACEUTICALS INC.-2019-01746

PATIENT
  Age: 46 Year
  Sex: Male

DRUGS (3)
  1. DECITABINE. [Suspect]
     Active Substance: DECITABINE
     Indication: MYELOFIBROSIS
     Dosage: 20 MILLIGRAM/SQ. METER, QD (FIRST CYCLE)
     Route: 065
  2. RUXOLITINIB [Suspect]
     Active Substance: RUXOLITINIB
     Dosage: 20 MILLIGRAM, QD  (DOSE REDUCTION)
     Route: 065
  3. RUXOLITINIB [Suspect]
     Active Substance: RUXOLITINIB
     Indication: SPLENOMEGALY
     Dosage: 20 MILLIGRAM, BID
     Route: 065

REACTIONS (4)
  - Cytopenia [Unknown]
  - Thrombocytopenia [Unknown]
  - Acute febrile neutrophilic dermatosis [Recovered/Resolved]
  - Neutropenia [Unknown]
